FAERS Safety Report 4579593-X (Version None)
Quarter: 2005Q1

REPORT INFORMATION
  Report Type: 
  Country: None (occurrence: None)
  Receive Date: 20050210
  Receipt Date: 20050126
  Transmission Date: 20050727
  Serious: Yes (Death, Hospitalization)
  Sender: FDA-Public Use
  Company Number: 2004AL000825

PATIENT
  Age: 59 Year
  Sex: Male

DRUGS (10)
  1. LORAZEPAM [Suspect]
     Dosage: PO
     Route: 048
  2. KADIAN [Suspect]
     Dosage: PO
     Route: 048
  3. DIAZEPAM [Concomitant]
  4. ZOLPIDEM TARTRATE [Concomitant]
  5. DIGITOXIN TAB [Concomitant]
  6. ASPIRIN [Concomitant]
  7. DEXTRAMETHASONE [Concomitant]
  8. WARFARIN SODIUM [Concomitant]
  9. RANITIDINE [Concomitant]
  10. PROPAFENONE HYDROCHLORIDE [Concomitant]

REACTIONS (18)
  - AREFLEXIA [None]
  - ATRIAL FIBRILLATION [None]
  - BLOOD CHLORIDE DECREASED [None]
  - BLOOD GLUCOSE INCREASED [None]
  - BLOOD PRESSURE DECREASED [None]
  - BLOOD SODIUM DECREASED [None]
  - COMA [None]
  - COMPLETED SUICIDE [None]
  - EXTENSOR PLANTAR RESPONSE [None]
  - GENERAL PHYSICAL HEALTH DETERIORATION [None]
  - HEART RATE IRREGULAR [None]
  - INTENTIONAL MISUSE [None]
  - INTERNATIONAL NORMALISED RATIO INCREASED [None]
  - PROTHROMBIN TIME PROLONGED [None]
  - PUPIL FIXED [None]
  - PUPILS UNEQUAL [None]
  - THERAPY NON-RESPONDER [None]
  - UNRESPONSIVE TO PAIN STIMULI [None]
